FAERS Safety Report 4466020-6 (Version None)
Quarter: 2004Q3

REPORT INFORMATION
  Report Type: 
  Country: None (occurrence: None)
  Receive Date: 20040930
  Receipt Date: 20040923
  Transmission Date: 20050211
  Serious: Yes (Other)
  Sender: FDA-Public Use
  Company Number: CHNY2004CA01770

PATIENT
  Age: 51 Year
  Sex: Female

DRUGS (5)
  1. TRANSDERM VOYAGER [Suspect]
     Indication: MOTION SICKNESS
     Dosage: 1 PATCH, TRANSDERMAL (SEE IMAGE)
     Route: 062
     Dates: start: 20040819, end: 20040821
  2. TRANSDERM VOYAGER [Suspect]
     Indication: MOTION SICKNESS
     Dosage: 1 PATCH, TRANSDERMAL (SEE IMAGE)
     Route: 062
     Dates: start: 20040823, end: 20040826
  3. TRANSDERM VOYAGER [Suspect]
     Indication: MOTION SICKNESS
     Dosage: 1 PATCH, TRANSDERMAL (SEE IMAGE)
     Route: 062
     Dates: start: 20040901, end: 20040904
  4. TRANSDERM VOYAGER [Suspect]
     Indication: MOTION SICKNESS
     Dosage: 1 PATCH, TRANSDERMAL (SEE IMAGE)
     Route: 062
     Dates: start: 20040905, end: 20040907
  5. TRANSDERM VOYAGER [Suspect]
     Indication: MOTION SICKNESS
     Dosage: 1 PATCH, TRANSDERMAL (SEE IMAGE)
     Route: 062
     Dates: start: 20040814

REACTIONS (6)
  - APPLICATION SITE IRRITATION [None]
  - FATIGUE [None]
  - NAUSEA [None]
  - VISION BLURRED [None]
  - VOMITING [None]
  - WEIGHT DECREASED [None]
